FAERS Safety Report 12524140 (Version 3)
Quarter: 2016Q3

REPORT INFORMATION
  Report Type: Report from Study
  Country: AU (occurrence: AU)
  Receive Date: 20160704
  Receipt Date: 20160729
  Transmission Date: 20161109
  Serious: Yes (Hospitalization)
  Sender: FDA-Public Use
  Company Number: AU-ROCHE-1780262

PATIENT
  Age: 48 Year
  Sex: Female
  Weight: 117.5 kg

DRUGS (26)
  1. PROGYNOVA [Concomitant]
     Active Substance: ESTRADIOL VALERATE
     Indication: HORMONE REPLACEMENT THERAPY
     Route: 065
     Dates: start: 200006, end: 20150831
  2. CEPHALEXIN. [Concomitant]
     Active Substance: CEPHALEXIN
     Indication: CYST
     Route: 065
     Dates: start: 20130505, end: 20130510
  3. LIGNOSPAN [Concomitant]
     Indication: TOOTH INFECTION
     Route: 065
     Dates: start: 20130828, end: 20130828
  4. AUGMENTIN DUO FORTE [Concomitant]
     Active Substance: AMOXICILLIN\CLAVULANATE POTASSIUM
     Indication: LOWER RESPIRATORY TRACT INFECTION
     Dosage: 1750/250 MG
     Route: 065
     Dates: start: 20160330
  5. PARIET [Concomitant]
     Active Substance: RABEPRAZOLE SODIUM
     Indication: GASTROOESOPHAGEAL REFLUX DISEASE
     Route: 065
     Dates: start: 200506, end: 20140901
  6. PROGYNOVA [Concomitant]
     Active Substance: ESTRADIOL VALERATE
     Route: 065
     Dates: start: 20160222
  7. ZOLOFT [Concomitant]
     Active Substance: SERTRALINE HYDROCHLORIDE
     Indication: DEPRESSION
     Route: 065
     Dates: start: 200006, end: 20130415
  8. METRONIDAZOLE. [Concomitant]
     Active Substance: METRONIDAZOLE
     Route: 065
     Dates: start: 20130828, end: 20130905
  9. PROGYNOVA [Concomitant]
     Active Substance: ESTRADIOL VALERATE
     Route: 065
     Dates: start: 20160222
  10. TRAUMEEL [Concomitant]
     Indication: MUSCLE SPASMS
     Route: 065
     Dates: start: 20150301
  11. LACRI-LUBE (AUSTRALIA) [Concomitant]
     Indication: DRY EYE
     Dosage: 1 DROP TOPICAL NOCTE
     Route: 065
     Dates: start: 20130715
  12. PROGYNOVA [Concomitant]
     Active Substance: ESTRADIOL VALERATE
     Route: 065
     Dates: start: 20160116, end: 20160221
  13. AMOXYCILLIN [Concomitant]
     Active Substance: AMOXICILLIN
     Route: 065
     Dates: start: 20150828, end: 20150905
  14. PROGYNOVA [Concomitant]
     Active Substance: ESTRADIOL VALERATE
     Route: 065
     Dates: start: 20160116, end: 20160221
  15. MIRTAZAPINE. [Concomitant]
     Active Substance: MIRTAZAPINE
     Indication: SLEEP DISORDER
     Route: 065
     Dates: start: 20140617, end: 20150101
  16. ZOLOFT [Concomitant]
     Active Substance: SERTRALINE HYDROCHLORIDE
     Route: 065
     Dates: start: 20150501
  17. PROGESTERONE. [Concomitant]
     Active Substance: PROGESTERONE
     Route: 065
     Dates: start: 20150812, end: 20160116
  18. ATENOLOL. [Concomitant]
     Active Substance: ATENOLOL
     Route: 065
     Dates: start: 200006, end: 20140920
  19. CEPHALEXIN. [Concomitant]
     Active Substance: CEPHALEXIN
     Route: 065
     Dates: start: 20160502, end: 20160504
  20. RULIDE [Concomitant]
     Active Substance: ROXITHROMYCIN
     Indication: LOWER RESPIRATORY TRACT INFECTION
     Route: 065
     Dates: start: 20160323, end: 20160328
  21. CLOTRIMAZOLE CREME [Concomitant]
     Indication: VULVOVAGINAL CANDIDIASIS
     Route: 065
     Dates: start: 20160403, end: 20160408
  22. ZOLOFT [Concomitant]
     Active Substance: SERTRALINE HYDROCHLORIDE
     Route: 065
     Dates: start: 20130415, end: 20150501
  23. AMOXYCILLIN [Concomitant]
     Active Substance: AMOXICILLIN
     Route: 065
     Dates: start: 20150605, end: 20150612
  24. VISMODEGIB [Suspect]
     Active Substance: VISMODEGIB
     Indication: BASAL CELL CARCINOMA
     Dosage: LAST DOSE PRIOR TO SERIOUS ADVERSE EVENT (SAE): 15/JUN/2016
     Route: 048
     Dates: start: 20130325
  25. AMOXYCILLIN [Concomitant]
     Active Substance: AMOXICILLIN
     Indication: UPPER RESPIRATORY TRACT INFECTION
     Route: 065
     Dates: start: 20130528, end: 20130905
  26. INNER HEALTH PLUS [Concomitant]
     Route: 065
     Dates: start: 20150301

REACTIONS (1)
  - Cyst [Recovered/Resolved]

NARRATIVE: CASE EVENT DATE: 20160501
